FAERS Safety Report 25005761 (Version 1)
Quarter: 2025Q1

REPORT INFORMATION
  Report Type: Spontaneous
  Country: CN (occurrence: CN)
  Receive Date: 20250224
  Receipt Date: 20250224
  Transmission Date: 20250408
  Serious: Yes (Death)
  Sender: PFIZER
  Company Number: CN-PFIZER INC-PV202500021631

PATIENT
  Age: 84 Year
  Sex: Male

DRUGS (6)
  1. MEROPENEM [Suspect]
     Active Substance: MEROPENEM
     Indication: Anti-infective therapy
     Dosage: 1 G, Q8H
  2. CEFMETAZOLE [Suspect]
     Active Substance: CEFMETAZOLE
     Indication: Gingival ulceration
     Dosage: 2.0 MG, Q12H
     Route: 042
  3. CEFMETAZOLE [Suspect]
     Active Substance: CEFMETAZOLE
     Indication: Mucosal ulceration
  4. CEFDINIR [Suspect]
     Active Substance: CEFDINIR
     Indication: Gingival ulceration
     Dosage: 0.1 G, Q8H
     Route: 048
  5. CEFDINIR [Suspect]
     Active Substance: CEFDINIR
     Indication: Mucosal ulceration
  6. INDAPAMIDE [Concomitant]
     Active Substance: INDAPAMIDE
     Indication: Hypertension
     Dosage: 1.5 MG, DAILY
     Route: 048

REACTIONS (1)
  - Drug ineffective [Fatal]
